FAERS Safety Report 5395068-2 (Version None)
Quarter: 2007Q3

REPORT INFORMATION
  Report Type: 
  Country: None (occurrence: None)
  Receive Date: 20070718
  Receipt Date: 20070315
  Transmission Date: 20080115
  Serious: Yes (Death, Hospitalization, Other)
  Sender: FDA-Public Use
  Company Number: 2006130850

PATIENT
  Age: 65 Year
  Sex: Female
  Weight: 63.1 kg

DRUGS (3)
  1. CELEBREX [Suspect]
     Indication: ARTHRITIS
     Dosage: 400 MG (200 MG), ORAL
     Route: 048
     Dates: start: 20040820, end: 20040920
  2. CELEBREX [Suspect]
     Indication: PAIN
     Dosage: 400 MG (200 MG), ORAL
     Route: 048
     Dates: start: 20040820, end: 20040920
  3. CELEBREX [Suspect]
     Indication: PAIN IN EXTREMITY
     Dosage: 400 MG (200 MG), ORAL
     Route: 048
     Dates: start: 20040820, end: 20040920

REACTIONS (1)
  - MYOCARDIAL INFARCTION [None]
